FAERS Safety Report 6172348-4 (Version None)
Quarter: 2009Q2

REPORT INFORMATION
  Report Type: 
  Country: None (occurrence: None)
  Receive Date: 20090429
  Receipt Date: 20090417
  Transmission Date: 20091009
  Serious: Yes (Other)
  Sender: FDA-Public Use
  Company Number: CA-PFIZER INC-2009200306

PATIENT

DRUGS (2)
  1. CHAMPIX [Suspect]
     Dosage: UNK
     Dates: start: 20090214
  2. LIPITOR [Concomitant]
     Dosage: UNK

REACTIONS (2)
  - MAJOR DEPRESSION [None]
  - SUICIDAL BEHAVIOUR [None]
